FAERS Safety Report 8387759-6 (Version None)
Quarter: 2012Q2

REPORT INFORMATION
  Report Type: 
  Country: None (occurrence: None)
  Receive Date: 20120525
  Receipt Date: 20120516
  Transmission Date: 20120825
  Serious: Yes (Other)
  Sender: FDA-Public Use
  Company Number: CA-GLAXOSMITHKLINE-A0977733A

PATIENT
  Sex: Female
  Weight: 50 kg

DRUGS (6)
  1. VITAMIN TAB [Concomitant]
     Route: 065
  2. HYDROCHLOROTHIAZIDE [Concomitant]
     Dosage: 12.5MG UNKNOWN
     Route: 065
  3. ESTRACE [Concomitant]
     Dosage: 1MG UNKNOWN
     Route: 065
  4. OLANZAPINE [Concomitant]
     Dosage: 1.25MG UNKNOWN
     Route: 065
  5. ADVAIR DISKUS 100/50 [Suspect]
     Indication: CHRONIC OBSTRUCTIVE PULMONARY DISEASE
     Dosage: 1PUFF TWICE PER DAY
     Route: 055
     Dates: start: 20060101
  6. CALCIUM [Concomitant]
     Route: 065

REACTIONS (4)
  - THROAT IRRITATION [None]
  - PNEUMONIA [None]
  - DYSPHAGIA [None]
  - OROPHARYNGEAL PAIN [None]
